FAERS Safety Report 23843107 (Version 1)
Quarter: 2024Q2

REPORT INFORMATION
  Report Type: Spontaneous
  Country: US (occurrence: None)
  Receive Date: 20240509
  Receipt Date: 20240509
  Transmission Date: 20240716
  Serious: Yes (Other)
  Sender: FDA-Public Use
  Company Number: None

PATIENT
  Age: 30 Year
  Sex: Female
  Weight: 44.1 kg

DRUGS (6)
  1. CLENPIQ [Suspect]
     Active Substance: ANHYDROUS CITRIC ACID\MAGNESIUM OXIDE\SODIUM PICOSULFATE
     Indication: Colonoscopy
     Dosage: OTHER QUANTITY : 1 175 ML;?FREQUENCY : AT BEDTIME;?
     Route: 048
     Dates: start: 20240508, end: 20240509
  2. STELARA [Suspect]
     Active Substance: USTEKINUMAB
     Indication: Colonoscopy
     Dosage: OTHER QUANTITY : 1 INJECTION;?OTHER FREQUENCY : EVERY 8 WEEKS;?
     Route: 030
     Dates: start: 20210407, end: 20240403
  3. FAMOTIDINE [Concomitant]
     Active Substance: FAMOTIDINE
  4. VITAMINS [Concomitant]
     Active Substance: VITAMINS
  5. ST. JOHN^S WORT [Concomitant]
     Active Substance: ST. JOHN^S WORT
  6. HERBALS\TURMERIC [Concomitant]
     Active Substance: HERBALS\TURMERIC

REACTIONS (7)
  - Headache [None]
  - Abdominal pain upper [None]
  - Gastrooesophageal reflux disease [None]
  - Vomiting [None]
  - Vaginal haemorrhage [None]
  - Rectal haemorrhage [None]
  - Therapy interrupted [None]

NARRATIVE: CASE EVENT DATE: 20240508
